FAERS Safety Report 17690190 (Version 2)
Quarter: 2020Q2

REPORT INFORMATION
  Report Type: Spontaneous
  Country: US (occurrence: US)
  Receive Date: 20200421
  Receipt Date: 20200501
  Transmission Date: 20200714
  Serious: Yes (Other)
  Sender: FDA-Public Use
  Company Number: US-NOVOPROD-724123

PATIENT
  Sex: Female

DRUGS (2)
  1. ADMELOG [Concomitant]
     Active Substance: INSULIN LISPRO
     Indication: TYPE 1 DIABETES MELLITUS
     Dosage: UNK
     Route: 065
  2. TRESIBA [Suspect]
     Active Substance: INSULIN DEGLUDEC
     Indication: TYPE 1 DIABETES MELLITUS
     Dosage: 28-30 UNITS
     Route: 058

REACTIONS (5)
  - Fall [Unknown]
  - Blood glucose decreased [Unknown]
  - Confusional arousal [Unknown]
  - Coronary artery bypass [Unknown]
  - Somnolence [Unknown]

NARRATIVE: CASE EVENT DATE: 201911
